FAERS Safety Report 6546184-0 (Version None)
Quarter: 2010Q1

REPORT INFORMATION
  Report Type: 
  Country: None (occurrence: None)
  Receive Date: 20100119
  Receipt Date: 20100104
  Transmission Date: 20100710
  Serious: Yes (Hospitalization, Disabling, Other)
  Sender: FDA-Public Use
  Company Number: 2009AC000260

PATIENT
  Age: 30 Year
  Sex: Female

DRUGS (29)
  1. DIGOXIN [Suspect]
     Dosage: 0.25 MG;QD;PO
     Route: 048
     Dates: start: 19990101
  2. DIGOXIN [Suspect]
     Dosage: 0.25 MG;QD;PO
     Route: 048
     Dates: start: 19990101
  3. K-DUR [Concomitant]
  4. LASIX [Concomitant]
  5. ASPIRIN [Concomitant]
  6. SPIRONOLACTONE [Concomitant]
  7. MIRTAZAPINE [Concomitant]
  8. VASOTEC [Concomitant]
  9. CATAPRES [Concomitant]
  10. TOROL XL [Concomitant]
  11. LOTENSIN [Concomitant]
  12. CELLCEPT [Concomitant]
  13. PROGRAF [Concomitant]
  14. PREDNISONE [Concomitant]
  15. SIMVASTATIN [Concomitant]
  16. LISINOPRIL [Concomitant]
  17. POTASSIUM [Concomitant]
  18. CLONAZEPAM [Concomitant]
  19. SPIRONOLACTONE [Concomitant]
  20. ZOLOFT [Concomitant]
  21. TEMAZEPAM [Concomitant]
  22. TOPROL-XL [Concomitant]
  23. AVAPRO [Concomitant]
  24. ASPIRIN [Concomitant]
  25. FUROSEMIDE [Concomitant]
  26. MIDRIN [Concomitant]
  27. FLEXERIL [Concomitant]
  28. POTASSIUM CHLORIDE [Concomitant]
  29. ZAROXOLYN [Concomitant]

REACTIONS (29)
  - ANAEMIA [None]
  - ANXIETY [None]
  - ASTHENIA [None]
  - CARDIAC FAILURE CONGESTIVE [None]
  - CARDIOMEGALY [None]
  - CARDIOMYOPATHY [None]
  - CHEST DISCOMFORT [None]
  - CHEST PAIN [None]
  - COUGH [None]
  - DIZZINESS [None]
  - DYSPNOEA [None]
  - ECONOMIC PROBLEM [None]
  - EMPHYSEMA [None]
  - HAEMORRHAGE [None]
  - HEART TRANSPLANT [None]
  - HYPERKALAEMIA [None]
  - HYPERTENSION [None]
  - INJURY [None]
  - MUSCLE SPASMS [None]
  - MUSCULAR WEAKNESS [None]
  - NAUSEA [None]
  - OEDEMA PERIPHERAL [None]
  - PANIC ATTACK [None]
  - PARAESTHESIA [None]
  - PNEUMONIA ASPIRATION [None]
  - POSTPARTUM DISORDER [None]
  - PULMONARY OEDEMA [None]
  - TRANSIENT ISCHAEMIC ATTACK [None]
  - URINARY TRACT INFECTION [None]
